FAERS Safety Report 5967673-3 (Version None)
Quarter: 2008Q4

REPORT INFORMATION
  Report Type: 
  Country: None (occurrence: None)
  Receive Date: 20081126
  Receipt Date: 20081118
  Transmission Date: 20090506
  Serious: Yes (Other)
  Sender: FDA-Public Use
  Company Number: PHBS2008IT06412

PATIENT
  Age: 4 Year
  Sex: Female

DRUGS (9)
  1. CYCLOSPORINE [Suspect]
     Indication: BONE MARROW TRANSPLANT
     Dosage: 2 MG/KG/DAY
     Route: 042
     Dates: start: 19920101
  2. CYCLOSPORINE [Suspect]
     Indication: PROPHYLAXIS AGAINST GRAFT VERSUS HOST DISEASE
  3. CYCLOSPORINE [Suspect]
     Route: 065
  4. CYCLOSPORINE [Suspect]
  5. METHOTREXATE [Suspect]
     Indication: PROPHYLAXIS AGAINST GRAFT VERSUS HOST DISEASE
     Dosage: 15 MG/M2 DAY +1
     Dates: start: 19920101
  6. METHOTREXATE [Suspect]
     Indication: BONE MARROW TRANSPLANT
     Dosage: 10 MG/M2 DAY +3, +6 AND +11
  7. PREDNISONE TAB [Suspect]
     Indication: ACUTE GRAFT VERSUS HOST DISEASE
  8. CORTICOSTEROIDS [Suspect]
     Indication: CHRONIC GRAFT VERSUS HOST DISEASE
     Route: 048
  9. VACCINES [Concomitant]

REACTIONS (9)
  - ACUTE GRAFT VERSUS HOST DISEASE [None]
  - BASAL CELL CARCINOMA [None]
  - CHRONIC GRAFT VERSUS HOST DISEASE [None]
  - GROWTH RETARDATION [None]
  - HYPOTHYROIDISM [None]
  - PITYRIASIS ROSEA [None]
  - RASH ERYTHEMATOUS [None]
  - SKIN LESION [None]
  - SKIN NEOPLASM EXCISION [None]
